FAERS Safety Report 9959422 (Version 3)
Quarter: 2014Q1

REPORT INFORMATION
  Report Type: Spontaneous
  Country: US (occurrence: None)
  Receive Date: 20140227
  Receipt Date: 20140327
  Transmission Date: 20141002
  Serious: Yes (Hospitalization, Other)
  Sender: FDA-Public Use
  Company Number: UTC-044509

PATIENT
  Age: 70 Year
  Sex: Male

DRUGS (3)
  1. TYVASO [Suspect]
     Indication: PULMONARY ARTERIAL HYPERTENSION
     Dosage: 72 MCG (18 MCG, 4 IN 1 D),. INHALATION
     Route: 055
     Dates: start: 20140127, end: 20140129
  2. ADCIRCA [Concomitant]
     Indication: PRODUCT USED FOR UNKNOWN INDICATION
  3. LETAIRIS [Suspect]
     Indication: PULMONARY ARTERIAL HYPERTENSION
     Dates: start: 20131203

REACTIONS (6)
  - Chest pain [None]
  - Gastrointestinal haemorrhage [None]
  - Anaemia [None]
  - Cough [None]
  - Fatigue [None]
  - Headache [None]
